FAERS Safety Report 16845812 (Version 1)
Quarter: 2019Q3

REPORT INFORMATION
  Report Type: Spontaneous
  Country: US (occurrence: US)
  Receive Date: 20190924
  Receipt Date: 20190924
  Transmission Date: 20191005
  Serious: No
  Sender: FDA-Public Use
  Company Number: US-CATALYST PHARMACEUTICALS, INC-2019CAT00298

PATIENT
  Age: 63 Year
  Sex: Female
  Weight: 107.48 kg

DRUGS (22)
  1. FIRDAPSE [Suspect]
     Active Substance: AMIFAMPRIDINE
     Indication: MYASTHENIC SYNDROME
     Dosage: 5 MG, 2X/DAY
     Route: 048
     Dates: start: 20190716, end: 201907
  2. FUROSEMIDE. [Concomitant]
     Active Substance: FUROSEMIDE
     Dosage: 80 MG, 1X/DAY IN THE MORNING
  3. KLONOPIN [Concomitant]
     Active Substance: CLONAZEPAM
     Dosage: 1 DOSAGE UNITS, UP TO 3X/DAY AS NEEDED
  4. VITAMIN D [Concomitant]
     Active Substance: VITAMIN D NOS
  5. MAGNESIUM [Concomitant]
     Active Substance: MAGNESIUM
  6. DANTROLENE. [Concomitant]
     Active Substance: DANTROLENE SODIUM
  7. OXCARBAZEPINE. [Concomitant]
     Active Substance: OXCARBAZEPINE
     Dosage: 300 MG, 2X/DAY
  8. MONTELUKAST [Concomitant]
     Active Substance: MONTELUKAST SODIUM
  9. TRAMADOL. [Concomitant]
     Active Substance: TRAMADOL
  10. PROPRANOLOL [Concomitant]
     Active Substance: PROPRANOLOL HYDROCHLORIDE
  11. B12 COMPLEX [Concomitant]
  12. FOLIC ACID. [Concomitant]
     Active Substance: FOLIC ACID
  13. LEVOTHYROXINE. [Concomitant]
     Active Substance: LEVOTHYROXINE
  14. POTASSIUM [Concomitant]
     Active Substance: POTASSIUM
     Dosage: UNK, 2X/DAY
  15. ATORVASTATIN [Concomitant]
     Active Substance: ATORVASTATIN
     Dosage: 40 MG, 1X/DAY AT NIGHT
     Route: 048
  16. LORATADINE. [Concomitant]
     Active Substance: LORATADINE
  17. LYRICA [Concomitant]
     Active Substance: PREGABALIN
  18. TRAZODONE [Concomitant]
     Active Substance: TRAZODONE HYDROCHLORIDE
  19. FISH OIL [Suspect]
     Active Substance: FISH OIL
     Dosage: UNK
     Dates: start: 2019
  20. KLONOPIN [Concomitant]
     Active Substance: CLONAZEPAM
     Dosage: 2 DOSAGE UNITS, ONCE
     Dates: start: 201907, end: 201907
  21. VENLAFAXINE [Concomitant]
     Active Substance: VENLAFAXINE HYDROCHLORIDE
  22. MULTIVITAMIN [Concomitant]
     Active Substance: VITAMINS

REACTIONS (16)
  - Hyperhidrosis [Recovering/Resolving]
  - Feeling cold [Recovering/Resolving]
  - Stress [Recovering/Resolving]
  - Hypertension [Unknown]
  - Nausea [Not Recovered/Not Resolved]
  - Hypophagia [Recovered/Resolved]
  - Migraine [Recovering/Resolving]
  - Malaise [Unknown]
  - Paraesthesia [Recovered/Resolved]
  - Dysgeusia [Recovering/Resolving]
  - Feeling abnormal [Unknown]
  - Weight decreased [Unknown]
  - Body temperature decreased [Unknown]
  - Paraesthesia oral [Recovered/Resolved]
  - Blood potassium decreased [Unknown]
  - Musculoskeletal stiffness [Recovering/Resolving]

NARRATIVE: CASE EVENT DATE: 201907
